FAERS Safety Report 5705145-1 (Version None)
Quarter: 2008Q2

REPORT INFORMATION
  Report Type: 
  Country: None (occurrence: None)
  Receive Date: 20080414
  Receipt Date: 20080402
  Transmission Date: 20081010
  Serious: Yes (Life-Threatening, Hospitalization)
  Sender: FDA-Public Use
  Company Number: CZ-GENENTECH-259015

PATIENT
  Sex: Female

DRUGS (9)
  1. RITUXIMAB [Suspect]
     Indication: DIFFUSE LARGE B-CELL LYMPHOMA
     Dosage: 620 MG, UNK
     Dates: start: 20071213
  2. DEXAMETHASONE [Suspect]
     Indication: DIFFUSE LARGE B-CELL LYMPHOMA
     Dosage: 140 MG, UNK
     Dates: start: 20071215
  3. CISPLATIN [Suspect]
     Indication: DIFFUSE LARGE B-CELL LYMPHOMA
     Dosage: 165 MG, UNK
     Dates: start: 20071215
  4. CYTARABINE [Suspect]
     Indication: DIFFUSE LARGE B-CELL LYMPHOMA
     Dosage: 3300 MG, UNK
     Dates: start: 20071215
  5. NEUPOGEN [Suspect]
     Indication: DIFFUSE LARGE B-CELL LYMPHOMA
     Route: 058
     Dates: start: 20071215
  6. BICNU [Concomitant]
     Indication: DRUG USE FOR UNKNOWN INDICATION
     Dosage: 495 MG, UNK
     Dates: start: 20080304
  7. CYTARABINE [Concomitant]
     Indication: DRUG USE FOR UNKNOWN INDICATION
     Dosage: 2640 MG, UNK
     Dates: start: 20080304
  8. ETOPOSIDE [Concomitant]
     Indication: DRUG USE FOR UNKNOWN INDICATION
     Dosage: 2640 MG, UNK
     Dates: start: 20080304
  9. MELPHALAN [Concomitant]
     Indication: DRUG USE FOR UNKNOWN INDICATION
     Dosage: 230 MG, UNK
     Dates: start: 20080304

REACTIONS (2)
  - ENTEROCOLITIS HAEMORRHAGIC [None]
  - ILEUS PARALYTIC [None]
